FAERS Safety Report 8999820 (Version 3)
Quarter: 2013Q1

REPORT INFORMATION
  Report Type: Spontaneous
  Country: DE (occurrence: DE)
  Receive Date: 20130102
  Receipt Date: 20130130
  Transmission Date: 20140127
  Serious: Yes (Hospitalization)
  Sender: FDA-Public Use
  Company Number: DE-INCYTE CORPORATION-2012IN002679

PATIENT
  Sex: Male

DRUGS (5)
  1. JAKAVI [Suspect]
     Indication: MYELOFIBROSIS
     Dosage: 20 MG, BID
     Route: 048
     Dates: start: 20121115, end: 20121218
  2. PREDNISOLON [Concomitant]
  3. PANTOPRAZOL [Concomitant]
  4. ALDACTONE [Concomitant]
  5. PROPRANOLOL [Concomitant]

REACTIONS (1)
  - Herpes zoster [Recovering/Resolving]
